FAERS Safety Report 4348545-7 (Version None)
Quarter: 2004Q2

REPORT INFORMATION
  Report Type: 
  Country: None (occurrence: None)
  Receive Date: 20040422
  Receipt Date: 20040413
  Transmission Date: 20050107
  Serious: Yes (Life-Threatening, Hospitalization, Other)
  Sender: FDA-Public Use
  Company Number: 2004-03-1916

PATIENT
  Age: 57 Year
  Sex: Female
  Weight: 64 kg

DRUGS (5)
  1. TEMODAL [Suspect]
     Indication: GLIOBLASTOMA MULTIFORME
     Dosage: 120 MG QD ORAL
     Route: 048
     Dates: start: 20040218, end: 20040318
  2. AMBISOME [Suspect]
     Dates: start: 20040330, end: 20040409
  3. DEPAKINE TABLETS [Suspect]
     Indication: EPILEPSY
     Dosage: 500 MG BID ORAL
     Route: 048
     Dates: start: 20040205, end: 20040318
  4. DEPAKINE TABLETS [Suspect]
     Indication: PROPHYLAXIS
     Dosage: 500 MG BID ORAL
     Route: 048
     Dates: start: 20040205, end: 20040318
  5. MEDROL [Concomitant]

REACTIONS (3)
  - HYPOKALAEMIA [None]
  - PANCYTOPENIA [None]
  - PYREXIA [None]
